FAERS Safety Report 10061747 (Version 2)
Quarter: 2014Q2

REPORT INFORMATION
  Report Type: Spontaneous
  Country: US (occurrence: US)
  Receive Date: 20140407
  Receipt Date: 20140423
  Transmission Date: 20141212
  Serious: Yes (Hospitalization)
  Sender: FDA-Public Use
  Company Number: US-BIOGENIDEC-2014BI029368

PATIENT
  Age: 57 Year
  Sex: Female

DRUGS (20)
  1. TYSABRI [Suspect]
     Indication: MULTIPLE SCLEROSIS
     Route: 042
     Dates: start: 20120719, end: 20140207
  2. VITAMIN D [Concomitant]
     Route: 048
  3. OMEGA 3 [Concomitant]
     Route: 048
  4. VITAMIN A AND D [Concomitant]
     Route: 048
  5. ASPIRIN [Concomitant]
     Route: 048
  6. CELEBREX [Concomitant]
     Route: 048
  7. VITAMIN B6 [Concomitant]
     Route: 048
  8. VITAMIN B12 [Concomitant]
     Route: 048
  9. ZESTRIL [Concomitant]
     Route: 048
  10. ACARBOSE [Concomitant]
     Route: 048
  11. AMARYL [Concomitant]
     Route: 048
  12. FOLIC ACID [Concomitant]
     Route: 048
  13. FENOFIBRATE [Concomitant]
     Route: 048
  14. ACTOS [Concomitant]
     Route: 048
  15. ELAVIL [Concomitant]
     Route: 048
  16. CYMBALTA [Concomitant]
     Route: 048
  17. LASIX [Concomitant]
     Route: 048
  18. PROZAC [Concomitant]
  19. VICODIN [Concomitant]
  20. SINEMET CR [Concomitant]

REACTIONS (4)
  - Joint injury [Unknown]
  - Contusion [Unknown]
  - Haemarthrosis [Unknown]
  - Fall [Recovered/Resolved]
